FAERS Safety Report 7959540-0 (Version None)
Quarter: 2011Q4

REPORT INFORMATION
  Report Type: 
  Country: None (occurrence: None)
  Receive Date: 20111206
  Receipt Date: 20111202
  Transmission Date: 20120403
  Serious: Yes (Other)
  Sender: FDA-Public Use
  Company Number: US-ROCHE-1015045

PATIENT
  Sex: Female
  Weight: 96 kg

DRUGS (11)
  1. SINGULAIR [Concomitant]
     Indication: HYPERSENSITIVITY
  2. ALLEGRA [Concomitant]
     Indication: HYPERSENSITIVITY
     Route: 048
     Dates: start: 20020401
  3. SINGULAIR [Concomitant]
     Indication: ASTHMA
     Route: 048
     Dates: start: 20010401
  4. POTASSIUM ACETATE [Concomitant]
     Route: 048
  5. XOLAIR [Suspect]
     Indication: ASTHMA
     Route: 058
     Dates: start: 20110310, end: 20111118
  6. ALDACTONE [Concomitant]
  7. PREVACID [Concomitant]
     Indication: GASTROOESOPHAGEAL REFLUX DISEASE
     Route: 048
     Dates: start: 20020401
  8. FISH OIL [Concomitant]
  9. XOPENEX HFA [Concomitant]
  10. THEO-24 [Concomitant]
     Indication: ASTHMA
  11. IPRATROPIUM BROMIDE [Concomitant]

REACTIONS (2)
  - POLYMYALGIA RHEUMATICA [None]
  - TEMPORAL ARTERITIS [None]
